FAERS Safety Report 4716479-1 (Version None)
Quarter: 2005Q3

REPORT INFORMATION
  Report Type: 
  Country: None (occurrence: None)
  Receive Date: 20050714
  Receipt Date: 20050628
  Transmission Date: 20060218
  Serious: Yes (Life-Threatening, Hospitalization)
  Sender: FDA-Public Use
  Company Number: 212725

PATIENT
  Age: 74 Year
  Sex: Male
  Weight: 49 kg

DRUGS (7)
  1. RITUXAN [Suspect]
     Indication: LYMPHOMA
     Dosage: 500 MG, INTRAVENOUS
     Route: 042
     Dates: start: 20040628, end: 20040628
  2. RITUXAN [Suspect]
     Indication: LYMPHOMA
     Dosage: 500 MG, INTRAVENOUS
     Route: 042
     Dates: start: 20040720, end: 20040720
  3. RITUXAN [Suspect]
     Indication: LYMPHOMA
     Dosage: 500 MG, INTRAVENOUS
     Route: 042
     Dates: start: 20041025, end: 20041025
  4. PIPRARUBICIN (PIPRARUBICIN) [Concomitant]
  5. CYCLOPHOSPHAMIDE [Concomitant]
  6. VINCRISTINE [Concomitant]
  7. PREDNISONE [Concomitant]

REACTIONS (1)
  - SMALL INTESTINAL PERFORATION [None]
